FAERS Safety Report 5777988-X (Version None)
Quarter: 2008Q2

REPORT INFORMATION
  Report Type: 
  Country: None (occurrence: None)
  Receive Date: 20080617
  Receipt Date: 20080610
  Transmission Date: 20081010
  Serious: Yes (Death, Other)
  Sender: FDA-Public Use
  Company Number: 2008US001561

PATIENT
  Age: 58 Year
  Sex: Male

DRUGS (7)
  1. PROGRAF [Suspect]
     Indication: LUNG TRANSPLANT
  2. PREDNISOLONE ACETATE [Concomitant]
  3. SIROLIMUS (SIROLIMUS) [Concomitant]
  4. BACTRIM [Concomitant]
  5. LANSOPRAZOLE [Concomitant]
  6. ATORVASTATIN (ATORVASTATIN CALCIUM) [Concomitant]
  7. COZAAR [Concomitant]

REACTIONS (5)
  - BONE DISORDER [None]
  - FAILURE TO THRIVE [None]
  - POST TRANSPLANT LYMPHOPROLIFERATIVE DISORDER [None]
  - RENAL CANCER [None]
  - RENAL FAILURE CHRONIC [None]
